FAERS Safety Report 13042600 (Version 1)
Quarter: 2016Q4

REPORT INFORMATION
  Report Type: Spontaneous
  Country: FR (occurrence: FR)
  Receive Date: 20161219
  Receipt Date: 20161219
  Transmission Date: 20170207
  Serious: Yes (Other)
  Sender: FDA-Public Use
  Company Number: FR-MYLANLABS-2016M1055504

PATIENT

DRUGS (2)
  1. PROMETHAZINE [Suspect]
     Active Substance: PROMETHAZINE\PROMETHAZINE HYDROCHLORIDE
     Indication: PRODUCT USED FOR UNKNOWN INDICATION
     Dosage: 10 TABLETS OF 25MG PROMETHAZINE (AS A PART OF PURPLE DRANK COCKTAIL)
     Route: 048
  2. EUPHON                             /00959801/ [Suspect]
     Active Substance: ACONITUM NAPELLUS\CODEINE\SISYMBRIUM OFFICINALE WHOLE\SODIUM FORMATE
     Indication: PRODUCT USED FOR UNKNOWN INDICATION
     Dosage: 300ML OF EUPHON SYRUP HAVING 1 MG/ML OF CODEINE (AS A PART OF PURPLE DRANK COCKTAIL)
     Route: 048

REACTIONS (4)
  - Anxiety [Recovering/Resolving]
  - Drug abuse [Recovering/Resolving]
  - Drug dependence [Recovering/Resolving]
  - Toxicity to various agents [Recovering/Resolving]
